FAERS Safety Report 26011318 (Version 1)
Quarter: 2025Q4

REPORT INFORMATION
  Report Type: Spontaneous
  Country: EU (occurrence: EU)
  Receive Date: 20251107
  Receipt Date: 20251107
  Transmission Date: 20260118
  Serious: Yes (Hospitalization)
  Sender: NOVARTIS
  Company Number: EU-NOVOPROD-1544594

PATIENT
  Age: 16 Year
  Sex: Female
  Weight: 104.5 kg

DRUGS (10)
  1. DABRAFENIB [Suspect]
     Active Substance: DABRAFENIB
     Indication: Glioma
     Dosage: 300 MG, QD
     Route: 048
  2. TRAMETINIB [Suspect]
     Active Substance: TRAMETINIB
     Indication: Glioma
     Dosage: 2 MG, QD
     Route: 048
     Dates: start: 20230220
  3. SAXENDA [Suspect]
     Active Substance: LIRAGLUTIDE
     Indication: Metabolic syndrome
     Dosage: UNK
     Route: 065
     Dates: start: 20230210, end: 20250326
  4. SAXENDA [Suspect]
     Active Substance: LIRAGLUTIDE
     Indication: Obesity
  5. HYDROCORTISONE [Concomitant]
     Active Substance: HYDROCORTISONE
     Indication: Product used for unknown indication
     Dosage: UNK
     Route: 065
     Dates: start: 20200707
  6. ENALAPRIL [Concomitant]
     Active Substance: ENALAPRIL
     Indication: Product used for unknown indication
     Dosage: UNK
     Route: 065
     Dates: start: 20200807, end: 20250328
  7. CHOLECALCIFEROL [Concomitant]
     Active Substance: CHOLECALCIFEROL
     Indication: Product used for unknown indication
     Dosage: UNK
     Route: 065
     Dates: start: 20210217
  8. LEVOTHYROXINE [Concomitant]
     Active Substance: LEVOTHYROXINE
     Indication: Product used for unknown indication
     Dosage: UNK
     Route: 065
     Dates: start: 20210902
  9. ESTRADIOL HEMIHYDRATE [Concomitant]
     Active Substance: ESTRADIOL HEMIHYDRATE
     Indication: Product used for unknown indication
     Dosage: UNK
     Route: 065
     Dates: start: 20230823, end: 20240225
  10. POLYETHYLENE GLYCOLS [Concomitant]
     Active Substance: POLYETHYLENE GLYCOLS
     Indication: Product used for unknown indication
     Dosage: UNK
     Route: 065
     Dates: start: 20230201, end: 20250503

REACTIONS (1)
  - Confusional state [Recovered/Resolved]

NARRATIVE: CASE EVENT DATE: 20240202
